FAERS Safety Report 22212178 (Version 1)
Quarter: 2023Q2

REPORT INFORMATION
  Report Type: Spontaneous
  Country: US (occurrence: US)
  Receive Date: 20230414
  Receipt Date: 20230414
  Transmission Date: 20230722
  Serious: No
  Sender: FDA-Public Use
  Company Number: US-JNJFOC-20230423483

PATIENT

DRUGS (8)
  1. REMICADE [Suspect]
     Active Substance: INFLIXIMAB
     Indication: Crohn^s disease
     Dosage: 30 VIALS
     Route: 041
  2. REMICADE [Suspect]
     Active Substance: INFLIXIMAB
     Indication: Colitis
     Dosage: 11 VIALS
     Route: 041
  3. REMICADE [Suspect]
     Active Substance: INFLIXIMAB
     Dosage: 5 VIALS
     Route: 041
  4. REMICADE [Suspect]
     Active Substance: INFLIXIMAB
     Dosage: 2 VIALS
     Route: 041
  5. REMICADE [Suspect]
     Active Substance: INFLIXIMAB
     Dosage: 8 VIALS
     Route: 041
  6. REMICADE [Suspect]
     Active Substance: INFLIXIMAB
     Dosage: 8 VIALS
     Route: 041
  7. REMICADE [Suspect]
     Active Substance: INFLIXIMAB
     Dosage: 4 VIALS
     Route: 041
  8. REMICADE [Suspect]
     Active Substance: INFLIXIMAB
     Dosage: 4 VIALS
     Route: 041

REACTIONS (2)
  - Product storage error [Unknown]
  - Product dose omission issue [Unknown]

NARRATIVE: CASE EVENT DATE: 20230301
